FAERS Safety Report 9869576 (Version 1)
Quarter: 2014Q1

REPORT INFORMATION
  Report Type: Spontaneous
  Country: GB (occurrence: None)
  Receive Date: 20140131
  Receipt Date: 20140131
  Transmission Date: 20141002
  Serious: Yes (Hospitalization, Other)
  Sender: FDA-Public Use
  Company Number: AUR-APL-2014-00594

PATIENT
  Sex: Male

DRUGS (9)
  1. RIBAVIRIN (RIBAVIRIN) [Suspect]
     Indication: HEPATITIS C
     Dosage: 600 MG, 2 IN 1 D,
     Route: 048
     Dates: start: 20130920, end: 20131107
  2. INCIVO (TELAPREVIR) [Suspect]
     Indication: HEPATITIS C
     Dosage: 1125 MG, 2 IN 1 D
     Route: 048
     Dates: start: 20130920, end: 20131107
  3. PEGYLATED INTERFERON [Suspect]
     Indication: HEPATITIS C
     Dates: start: 20130920, end: 20131107
  4. AMLODIPINE(AMLODIPINE) [Concomitant]
  5. DOXAZOSIN (DOXAZOSIN) [Concomitant]
  6. FEXOFENADINE (FEXOFENADINE) (FEXOFENADINE) [Concomitant]
  7. GLICLAZIDE (GLICLAZIDE) [Concomitant]
  8. LANSOPRAZOLE (LANSOPRAZOLE) [Concomitant]
  9. LISINOPRIL (LISINOPRIL) [Concomitant]

REACTIONS (1)
  - Blood creatinine increased [None]
